FAERS Safety Report 7418750-1 (Version None)
Quarter: 2011Q2

REPORT INFORMATION
  Report Type: 
  Country: None (occurrence: None)
  Receive Date: 20110415
  Receipt Date: 20110412
  Transmission Date: 20111010
  Serious: No
  Sender: FDA-Public Use
  Company Number: US-PFIZER INC-2011031619

PATIENT
  Sex: Female
  Weight: 69.8 kg

DRUGS (13)
  1. AMLODIPINE [Concomitant]
     Dosage: 10 MG, 1X/DAY
     Route: 048
  2. ASPIRIN [Concomitant]
     Dosage: UNK
  3. ENALAPRIL [Concomitant]
     Dosage: 20 MG, 2X/DAY
     Route: 048
  4. CHANTIX [Suspect]
     Dosage: 1 MG, 2X/DAY
     Route: 048
  5. OYSTER CALCIUM [Concomitant]
     Dosage: 500 MG, 2X/DAY
     Route: 048
  6. VITAMIN E [Concomitant]
     Dosage: UNK
  7. CHANTIX [Suspect]
     Indication: SMOKING CESSATION THERAPY
     Dosage: 0.5 MG, 1X/DAY
     Route: 048
     Dates: start: 20110201
  8. FENOFIBRATE [Concomitant]
     Dosage: 134 MG, 1X/DAY
     Route: 048
  9. ATENOLOL [Concomitant]
     Dosage: 100 MG, 1X/DAY
     Route: 048
  10. DETROL LA [Concomitant]
     Dosage: 4 MG, 1X/DAY
     Route: 048
  11. VITAMIN D [Concomitant]
     Dosage: UNK
  12. FISH OIL [Concomitant]
     Dosage: UNK
  13. SIMVASTATIN [Concomitant]
     Dosage: 20 MG, 1X/DAY

REACTIONS (3)
  - NAUSEA [None]
  - VOMITING [None]
  - MALAISE [None]
